FAERS Safety Report 24640382 (Version 2)
Quarter: 2025Q3

REPORT INFORMATION
  Report Type: Report from Study
  Country: US (occurrence: US)
  Receive Date: 20241120
  Receipt Date: 20250918
  Transmission Date: 20251020
  Serious: Yes (Other)
  Sender: SUNOVION
  Company Number: US-SMPA-2024SPA005036

PATIENT
  Age: 65 Year
  Sex: Male

DRUGS (3)
  1. ORGOVYX [Suspect]
     Active Substance: RELUGOLIX
     Indication: Prostate cancer
     Route: 048
     Dates: start: 20241103, end: 20241103
  2. ORGOVYX [Suspect]
     Active Substance: RELUGOLIX
     Dosage: 120 MG, QD
     Route: 048
     Dates: start: 20241104
  3. NUBEQA [Concomitant]
     Active Substance: DAROLUTAMIDE

REACTIONS (8)
  - Anaphylactic reaction [Unknown]
  - Pollakiuria [Unknown]
  - Night sweats [Unknown]
  - Blood pressure increased [Unknown]
  - Feeling abnormal [Unknown]
  - Diarrhoea [Unknown]
  - Constipation [Unknown]
  - Fatigue [Unknown]
